FAERS Safety Report 25186162 (Version 1)
Quarter: 2025Q2

REPORT INFORMATION
  Report Type: Spontaneous
  Country: US (occurrence: US)
  Receive Date: 20250410
  Receipt Date: 20250410
  Transmission Date: 20250717
  Serious: Yes (Hospitalization)
  Sender: PRINSTON PHARMACEUTICAL
  Company Number: US-PRINSTON PHARMACEUTICAL INC.-2025PRN00120

PATIENT
  Age: 50 Year
  Sex: Female

DRUGS (10)
  1. CYCLOBENZAPRINE HYDROCHLORIDE [Suspect]
     Active Substance: CYCLOBENZAPRINE HYDROCHLORIDE
     Route: 065
  2. CLONIDINE HYDROCHLORIDE [Suspect]
     Active Substance: CLONIDINE HYDROCHLORIDE
     Route: 065
  3. METHOCARBAMOL [Suspect]
     Active Substance: METHOCARBAMOL
     Route: 065
  4. DULOXETINE [Suspect]
     Active Substance: DULOXETINE
     Dosage: 140 MG, 1X/DAY
     Route: 065
  5. BUPROPION [Suspect]
     Active Substance: BUPROPION
     Route: 065
  6. GABAPENTIN [Suspect]
     Active Substance: GABAPENTIN
     Route: 065
  7. MAGNESIUM OXIDE [Suspect]
     Active Substance: MAGNESIUM OXIDE
     Route: 065
  8. OLANZAPINE [Suspect]
     Active Substance: OLANZAPINE
     Route: 065
  9. TAMSULOSIN [Suspect]
     Active Substance: TAMSULOSIN
     Route: 065
  10. TRAZODONE [Suspect]
     Active Substance: TRAZODONE HYDROCHLORIDE
     Route: 065

REACTIONS (2)
  - Distributive shock [Recovering/Resolving]
  - Intentional overdose [Unknown]
